FAERS Safety Report 23978169 (Version 1)
Quarter: 2024Q2

REPORT INFORMATION
  Report Type: Report from Study
  Country: US (occurrence: US)
  Receive Date: 20240614
  Receipt Date: 20240614
  Transmission Date: 20240716
  Serious: Yes (Other)
  Sender: FDA-Public Use
  Company Number: US-Amarin Pharma  Inc-2024AMR000300

PATIENT
  Age: 42 Year
  Sex: Female

DRUGS (1)
  1. VASCEPA [Suspect]
     Active Substance: ICOSAPENT ETHYL
     Indication: Product used for unknown indication

REACTIONS (6)
  - Surgery [Unknown]
  - Therapy interrupted [Unknown]
  - Poor quality product administered [Unknown]
  - Product colour issue [Unknown]
  - Product odour abnormal [Unknown]
  - Product physical issue [Unknown]
